FAERS Safety Report 9382399 (Version 1)
Quarter: 2013Q3

REPORT INFORMATION
  Report Type: Spontaneous
  Country: SE (occurrence: SE)
  Receive Date: 20130703
  Receipt Date: 20130703
  Transmission Date: 20140515
  Serious: Yes (Other)
  Sender: FDA-Public Use
  Company Number: SE-ROXANE LABORATORIES, INC.-2013-RO-01073RO

PATIENT
  Age: 59 Year
  Sex: Female

DRUGS (6)
  1. AZATHIOPRINE [Suspect]
     Indication: COLITIS
     Dosage: 200 MG
     Dates: start: 201005
  2. AZATHIOPRINE [Suspect]
     Dosage: 175 MG
  3. AZATHIOPRINE [Suspect]
     Dosage: 50 MG
  4. MERCAPTOPURINE [Suspect]
     Indication: COLITIS
     Dosage: 100 MG
  5. MERCAPTOPURINE [Suspect]
     Dosage: 175 MG
  6. ALLOPURINOL [Suspect]
     Indication: COLITIS
     Dosage: 100 MG

REACTIONS (4)
  - Drug metabolising enzyme test abnormal [Unknown]
  - Hepatotoxicity [Recovered/Resolved]
  - Drug intolerance [Unknown]
  - Fatigue [Unknown]
